FAERS Safety Report 7150549-6 (Version None)
Quarter: 2010Q4

REPORT INFORMATION
  Report Type: 
  Country: None (occurrence: None)
  Receive Date: 20101124
  Receipt Date: 20101112
  Transmission Date: 20110411
  Serious: Yes (Death, Hospitalization)
  Sender: FDA-Public Use
  Company Number: 2010AC000571

PATIENT
  Age: 82 Year
  Sex: Female

DRUGS (29)
  1. DIGOXIN [Suspect]
     Dosage: PO
     Route: 048
     Dates: start: 19970901, end: 20080501
  2. VICODIN [Concomitant]
  3. CARDIZEM [Concomitant]
  4. ACETAMINOPHEN [Concomitant]
  5. PROMETHAZINE [Concomitant]
  6. METHOCARBAMOL [Concomitant]
  7. SYNTHROID [Concomitant]
  8. PREMARIN [Concomitant]
  9. WARFARIN [Concomitant]
  10. DILTIAZEM [Concomitant]
  11. FOSAMAX [Concomitant]
  12. AMITRIPTYLINE [Concomitant]
  13. AVAPRO [Concomitant]
  14. LIPITOR [Concomitant]
  15. ATENOLOL [Concomitant]
  16. LEVOTHYROXINE [Concomitant]
  17. HYDROCHLOROTHIAZIDE [Concomitant]
  18. MEVACOR [Concomitant]
  19. ELAVIL [Concomitant]
  20. LOVASTATIN [Concomitant]
  21. RESTORIL [Concomitant]
  22. KENALOG [Concomitant]
  23. FLUROAZEPAM [Concomitant]
  24. PHENERGAN [Concomitant]
  25. OXYGEN [Concomitant]
  26. LISINOPRIL [Concomitant]
  27. OMEPRAZOLE [Concomitant]
  28. CARDIZEM [Concomitant]
  29. HYDROCODONE [Concomitant]

REACTIONS (54)
  - AGGRESSION [None]
  - AGITATION [None]
  - AMNESIA [None]
  - AORTIC STENOSIS [None]
  - ATRIAL FIBRILLATION [None]
  - ATROPHY [None]
  - BACK PAIN [None]
  - BACTERIAL INFECTION [None]
  - BLOOD CHOLESTEROL INCREASED [None]
  - BRADYCARDIA [None]
  - CARDIAC MURMUR [None]
  - CARDIOACTIVE DRUG LEVEL DECREASED [None]
  - CAROTID ARTERY STENOSIS [None]
  - CHILLS [None]
  - COLD SWEAT [None]
  - COLONIC POLYP [None]
  - CONFUSIONAL STATE [None]
  - CYSTITIS [None]
  - DELIRIUM [None]
  - DEMENTIA [None]
  - DERMATITIS [None]
  - DIARRHOEA [None]
  - DISORIENTATION [None]
  - DIVERTICULUM [None]
  - DIZZINESS [None]
  - DYSARTHRIA [None]
  - ELECTROCARDIOGRAM ST-T SEGMENT ABNORMAL [None]
  - EPISTAXIS [None]
  - GASTRIC DISORDER [None]
  - HALLUCINATION [None]
  - HEADACHE [None]
  - HEPATIC CYST [None]
  - HIATUS HERNIA [None]
  - INSOMNIA [None]
  - JOINT RANGE OF MOTION DECREASED [None]
  - LEFT ATRIAL DILATATION [None]
  - LEFT VENTRICULAR HYPERTROPHY [None]
  - MENTAL STATUS CHANGES [None]
  - MITRAL VALVE INCOMPETENCE [None]
  - MYOCARDIAL INFARCTION [None]
  - OCCULT BLOOD POSITIVE [None]
  - OESOPHAGEAL HYPOMOTILITY [None]
  - OPERATIVE HAEMORRHAGE [None]
  - PAIN IN EXTREMITY [None]
  - PRESBYOESOPHAGUS [None]
  - PRURITUS [None]
  - PULMONARY HYPERTENSION [None]
  - RENAL CYST [None]
  - THERAPEUTIC AGENT TOXICITY [None]
  - TREMOR [None]
  - VENTRICULAR HYPERTROPHY [None]
  - VERTIGO [None]
  - VOMITING [None]
  - WEIGHT DECREASED [None]
